FAERS Safety Report 9300876 (Version 1)
Quarter: 2013Q2

REPORT INFORMATION
  Report Type: Spontaneous
  Country: US (occurrence: US)
  Receive Date: 20130521
  Receipt Date: 20130521
  Transmission Date: 20140414
  Serious: Yes (Hospitalization, Other)
  Sender: FDA-Public Use
  Company Number: US-BAYER-2013-061884

PATIENT
  Age: 43 Year
  Sex: Female
  Weight: 80.73 kg

DRUGS (20)
  1. YAZ [Suspect]
     Indication: PREMENSTRUAL DYSPHORIC DISORDER
  2. GIANVI [Suspect]
  3. METOPROLOL [Concomitant]
     Dosage: 25 MG, UNK
  4. PRAMIPEXOLE [Concomitant]
     Dosage: 0.75 MG, UNK
  5. LIDODERM [Concomitant]
     Dosage: UNK
  6. OXYCODONE [Concomitant]
     Dosage: 5 MG, UNK
  7. CALCIUM WITH VITAMIN D [Concomitant]
     Dosage: UNK
     Dates: start: 20120507
  8. MIRAPEX [Concomitant]
     Dosage: UNK
     Dates: start: 20120507
  9. MULTIVITAMIN [Concomitant]
     Dosage: UNK
     Dates: start: 20120507
  10. FERROUS SULFATE [Concomitant]
     Dosage: UNK
     Dates: start: 20120507
  11. FLAGYL [Concomitant]
     Dosage: UNK
     Dates: start: 20120423, end: 20120503
  12. VANCOMYCIN [Concomitant]
     Dosage: UNK
     Dates: start: 20120423, end: 20120503
  13. AMIODARONE [Concomitant]
     Dosage: UNK
     Dates: start: 20120423, end: 20120503
  14. POTASSIUM CHLORIDE [Concomitant]
  15. PRILOSEC [Concomitant]
  16. CELEXA [Concomitant]
     Dosage: 20 MG, UNK
  17. ZOFRAN [Concomitant]
  18. LEVOFLOXACIN [Concomitant]
  19. LOPERAMIDE [Concomitant]
  20. ZOSYN [Concomitant]

REACTIONS (3)
  - Cardiac arrest [Recovered/Resolved]
  - Pulmonary embolism [Recovering/Resolving]
  - Cholelithiasis [None]
